FAERS Safety Report 11727995 (Version 1)
Quarter: 2015Q4

REPORT INFORMATION
  Report Type: Spontaneous
  Country: CN (occurrence: CN)
  Receive Date: 20151112
  Receipt Date: 20151112
  Transmission Date: 20160304
  Serious: Yes (Life-Threatening, Other)
  Sender: FDA-Public Use
  Company Number: CN-009507513-1511CHN003859

PATIENT
  Age: 89 Year
  Sex: Female
  Weight: 43 kg

DRUGS (9)
  1. SODIUM CHLORIDE. [Concomitant]
     Active Substance: SODIUM CHLORIDE
     Dosage: 100 ML, QD
     Route: 041
     Dates: start: 20150509, end: 20150512
  2. GLUTATHIONE [Concomitant]
     Active Substance: GLUTATHIONE
     Indication: PROPHYLAXIS
     Dosage: 1.8 G, QD
     Route: 041
     Dates: start: 20150509, end: 20150517
  3. PROBIOTICS (UNSPECIFIED) [Concomitant]
     Active Substance: PROBIOTICS NOS
     Indication: PROBIOTIC THERAPY
     Dosage: 2 G, TID, 30 MIN AFTER MEAL
     Route: 048
     Dates: start: 20150509, end: 20150517
  4. TIENAM [Suspect]
     Active Substance: CILASTATIN SODIUM\IMIPENEM
     Indication: LUNG INFECTION
     Dosage: 1 G, TID
     Route: 041
     Dates: start: 20150509, end: 20150512
  5. DEXTROSE. [Concomitant]
     Active Substance: DEXTROSE
     Dosage: 100 ML, QD
     Route: 041
     Dates: start: 20150509, end: 20150517
  6. CILASTATIN SODIUM [Concomitant]
     Active Substance: CILASTATIN SODIUM
     Dosage: 1 G, Q8H
     Route: 041
     Dates: start: 20150509, end: 20150512
  7. BETALOC [Concomitant]
     Active Substance: METOPROLOL TARTRATE
     Indication: CARDIAC FAILURE ACUTE
     Dosage: 12.5 MG, BID, 30 MIN BEFORE MEAL
     Route: 048
     Dates: start: 20150509, end: 20150518
  8. DIGOXIN. [Concomitant]
     Active Substance: DIGOXIN
     Indication: CARDIAC FAILURE ACUTE
     Dosage: 0.5 DF (0.125 MG) QD, 30 MIN AFTERMEAL
     Route: 048
     Dates: start: 20150509, end: 20150518
  9. IMIPENEM [Concomitant]
     Active Substance: IMIPENEM
     Dosage: 1 G, Q8H
     Route: 041
     Dates: start: 20150509, end: 20150512

REACTIONS (4)
  - Apnoea [Recovered/Resolved]
  - Muscle spasms [Recovered/Resolved]
  - Mental disorder [Recovered/Resolved]
  - Coma [Recovered/Resolved]

NARRATIVE: CASE EVENT DATE: 20150512
